FAERS Safety Report 7945815-8 (Version None)
Quarter: 2011Q4

REPORT INFORMATION
  Report Type: 
  Country: None (occurrence: None)
  Receive Date: 20111122
  Receipt Date: 20111109
  Transmission Date: 20120403
  Serious: Yes (Life-Threatening, Hospitalization, Other)
  Sender: FDA-Public Use
  Company Number: 2011MA016221

PATIENT
  Sex: Female
  Weight: 56.6996 kg

DRUGS (11)
  1. LISINOPRIL [Concomitant]
  2. NITROGLYCERIN [Concomitant]
  3. FLUOXETINE [Concomitant]
  4. PAXIL [Concomitant]
  5. PERSANTINE [Concomitant]
  6. ANTIBIOTICS [Concomitant]
  7. DIGOXIN [Suspect]
     Indication: CARDIAC VALVE DISEASE
     Dosage: 0.2 MG;QD;PO
     Route: 048
     Dates: start: 19820901, end: 20070724
  8. ASPIRIN [Concomitant]
  9. WARFARIN SODIUM [Concomitant]
  10. LANOXIN [Concomitant]
  11. LOPRESSOR [Concomitant]

REACTIONS (23)
  - PALPITATIONS [None]
  - DYSPNOEA [None]
  - ECONOMIC PROBLEM [None]
  - ISCHAEMIC CARDIOMYOPATHY [None]
  - SOCIAL PROBLEM [None]
  - CARDIOMEGALY [None]
  - CHEST DISCOMFORT [None]
  - NAUSEA [None]
  - FAMILY STRESS [None]
  - HYPERHIDROSIS [None]
  - HEART RATE INCREASED [None]
  - DIZZINESS [None]
  - DECREASED APPETITE [None]
  - PAIN [None]
  - SINUSITIS [None]
  - VENTRICULAR TACHYCARDIA [None]
  - EPIGASTRIC DISCOMFORT [None]
  - ACUTE CORONARY SYNDROME [None]
  - HEPATITIS C [None]
  - TOXICITY TO VARIOUS AGENTS [None]
  - INJURY [None]
  - ANXIETY [None]
  - MYOCARDIAL INFARCTION [None]
